FAERS Safety Report 12357824 (Version 1)
Quarter: 2016Q2

REPORT INFORMATION
  Report Type: Spontaneous
  Country: US (occurrence: US)
  Receive Date: 20160512
  Receipt Date: 20160512
  Transmission Date: 20160815
  Serious: No
  Sender: FDA-Public Use
  Company Number: PHHY2016US065501

PATIENT
  Sex: Female

DRUGS (1)
  1. VOLTAREN [Suspect]
     Active Substance: DICLOFENAC SODIUM
     Indication: FIBROMYALGIA
     Dosage: UNK
     Route: 065

REACTIONS (2)
  - Drug administration error [Unknown]
  - Drug ineffective for unapproved indication [Unknown]
